FAERS Safety Report 13355390 (Version 1)
Quarter: 2017Q1

REPORT INFORMATION
  Report Type: Spontaneous
  Country: CH (occurrence: CH)
  Receive Date: 20170321
  Receipt Date: 20170321
  Transmission Date: 20170429
  Serious: Yes (Hospitalization, Other)
  Sender: FDA-Public Use
  Company Number: CH-TEVA-748160ISR

PATIENT
  Age: 60 Year
  Sex: Female
  Weight: 59 kg

DRUGS (4)
  1. AULIN [Suspect]
     Active Substance: NIMESULIDE
     Indication: INFLUENZA
     Dosage: 200 MILLIGRAM DAILY;
     Route: 048
     Dates: start: 20170110, end: 20170114
  2. ALLOPURINOL MEPHA [Suspect]
     Active Substance: ALLOPURINOL
     Indication: GOUT
     Dosage: 300 MILLIGRAM DAILY;
     Route: 048
     Dates: start: 20161217, end: 20170112
  3. CANDESARTAN HELVEPHARM [Concomitant]
     Indication: HYPERTENSION
     Route: 048
     Dates: start: 20080625
  4. VI-DE 3 [Concomitant]
     Active Substance: CHOLECALCIFEROL
     Indication: VITAMIN D DEFICIENCY
     Route: 048
     Dates: start: 20110606

REACTIONS (3)
  - Drug reaction with eosinophilia and systemic symptoms [Recovered/Resolved]
  - Rash maculo-papular [Recovered/Resolved]
  - Pyrexia [Recovered/Resolved]

NARRATIVE: CASE EVENT DATE: 20170110
